FAERS Safety Report 11881534 (Version 1)
Quarter: 2015Q4

REPORT INFORMATION
  Report Type: Spontaneous
  Country: US (occurrence: None)
  Receive Date: 20151230
  Receipt Date: 20151230
  Transmission Date: 20160305
  Serious: No
  Sender: FDA-Public Use
  Company Number: None

PATIENT
  Sex: Male

DRUGS (1)
  1. GUANFACINE 1 MG SR [Suspect]
     Active Substance: GUANFACINE
     Indication: EPILEPSY
     Dosage: 2 TABS. IN AM + 1 TAB IN AFTERNOON
     Dates: start: 20151023

REACTIONS (3)
  - Seizure [None]
  - Condition aggravated [None]
  - Product substitution issue [None]
